FAERS Safety Report 19322581 (Version 1)
Quarter: 2021Q2

REPORT INFORMATION
  Report Type: Spontaneous
  Country: US (occurrence: US)
  Receive Date: 20210527
  Receipt Date: 20210527
  Transmission Date: 20210717
  Serious: No
  Sender: FDA-Public Use
  Company Number: US-EVOLUS, INC.-2021EV000108

PATIENT
  Age: 37 Year

DRUGS (3)
  1. JEUVEAU [Suspect]
     Active Substance: PRABOTULINUMTOXINA-XVFS
     Indication: SKIN WRINKLING
  2. JEUVEAU [Suspect]
     Active Substance: PRABOTULINUMTOXINA-XVFS
     Indication: SKIN WRINKLING
     Dosage: 35 UNITS TOTAL FOR GLABELLAR LINES, FOREHEAD, AND CROW^S FEET
     Dates: start: 202104
  3. JEUVEAU [Suspect]
     Active Substance: PRABOTULINUMTOXINA-XVFS
     Indication: PRODUCT USED FOR UNKNOWN INDICATION
     Dosage: 35 UNITS TOTAL FOR GLABELLAR LINES, FOREHEAD, AND CROW^S FEET
     Dates: start: 20210323

REACTIONS (2)
  - Off label use [Unknown]
  - Drug ineffective [Unknown]
